FAERS Safety Report 16104100 (Version 7)
Quarter: 2019Q3

REPORT INFORMATION
  Report Type: Report from Study
  Country: FR (occurrence: FR)
  Receive Date: 20190322
  Receipt Date: 20190911
  Transmission Date: 20191004
  Serious: Yes (Death, Life-Threatening, Hospitalization, Other)
  Sender: FDA-Public Use
  Company Number: FR-ACCORD-092780

PATIENT
  Age: 59 Year
  Sex: Male
  Weight: 79 kg

DRUGS (5)
  1. ZANOSAR [Suspect]
     Active Substance: STREPTOZOCIN
     Indication: PANCREATIC NEUROENDOCRINE TUMOUR
     Dosage: DOSAGE FORM: UNKNOWN
     Route: 065
     Dates: start: 20160408, end: 20160820
  2. STREPTOZOCIN [Suspect]
     Active Substance: STREPTOZOCIN
     Indication: PANCREATIC NEUROENDOCRINE TUMOUR
     Dosage: DOSAGE FORM: UNKNOWN
     Route: 065
  3. ADRIAMYCIN [Suspect]
     Active Substance: DOXORUBICIN HYDROCHLORIDE
     Indication: PANCREATIC NEUROENDOCRINE TUMOUR
     Dosage: 550 MG/M2, UNK
     Route: 065
     Dates: start: 20160408, end: 20170820
  4. FLUOROURACIL. [Suspect]
     Active Substance: FLUOROURACIL
     Indication: PANCREATIC NEUROENDOCRINE TUMOUR
     Dosage: 550 MG/M2, UNK
     Dates: end: 20160820
  5. DOXORUBICIN [Suspect]
     Active Substance: DOXORUBICIN
     Indication: PANCREATIC NEUROENDOCRINE TUMOUR
     Dosage: 550 MG/M2, UNK
     Route: 065
     Dates: start: 20160408, end: 20170820

REACTIONS (5)
  - Cardiac failure [Recovered/Resolved]
  - Femoral neck fracture [Fatal]
  - Off label use [Unknown]
  - Lung disorder [Unknown]
  - Cholangitis sclerosing [Fatal]

NARRATIVE: CASE EVENT DATE: 20160820
